FAERS Safety Report 11090524 (Version 2)
Quarter: 2015Q2

REPORT INFORMATION
  Report Type: Report from Study
  Country: CA (occurrence: CA)
  Receive Date: 20150505
  Receipt Date: 20150526
  Transmission Date: 20150821
  Serious: Yes (Other)
  Sender: FDA-Public Use
  Company Number: PHHY2011CA03547

PATIENT
  Age: 67 Year
  Sex: Male

DRUGS (2)
  1. SANDOSTATIN LAR DEPOT [Suspect]
     Active Substance: OCTREOTIDE ACETATE
     Dosage: 20 MG, EVERY 4 WEEKS
     Route: 030
  2. SANDOSTATIN LAR DEPOT [Suspect]
     Active Substance: OCTREOTIDE ACETATE
     Indication: CARCINOID TUMOUR
     Dosage: 20 MG, ONCE EVERY 4 WEEKS
     Route: 030
     Dates: start: 20101213, end: 20110112

REACTIONS (18)
  - Malignant neoplasm progression [Unknown]
  - Chest pain [Unknown]
  - Localised infection [Recovering/Resolving]
  - Peripheral swelling [Unknown]
  - Insomnia [Recovered/Resolved]
  - Injection site mass [Not Recovered/Not Resolved]
  - Injection site bruising [Recovered/Resolved]
  - Injection site pain [Recovered/Resolved]
  - Type 2 diabetes mellitus [Unknown]
  - Feeling abnormal [Unknown]
  - Metastases to liver [Unknown]
  - Face injury [Unknown]
  - Joint injury [Unknown]
  - Abasia [Recovered/Resolved]
  - Blood pressure increased [Unknown]
  - Fall [Unknown]
  - Swelling [Recovered/Resolved]
  - Blood pressure systolic increased [Unknown]

NARRATIVE: CASE EVENT DATE: 20130125
